FAERS Safety Report 8835436 (Version 3)
Quarter: 2013Q2

REPORT INFORMATION
  Report Type: Report from Study
  Country: MX (occurrence: MX)
  Receive Date: 20121011
  Receipt Date: 20130620
  Transmission Date: 20140414
  Serious: Yes (Disabling, Other)
  Sender: FDA-Public Use
  Company Number: MX-ROCHE-1048066

PATIENT
  Age: 64 Year
  Sex: Female
  Weight: 77 kg

DRUGS (5)
  1. HERCEPTIN [Suspect]
     Indication: BREAST CANCER
     Route: 042
     Dates: start: 201104
  2. LOSARTAN [Concomitant]
     Indication: HYPERTENSION
     Route: 048
     Dates: start: 2009
  3. METFORMIN [Concomitant]
     Indication: DIABETES MELLITUS
     Route: 048
     Dates: start: 2009
  4. CINNARIZINE [Concomitant]
     Indication: NERVOUSNESS
     Route: 048
     Dates: start: 1982
  5. CAPTOPRIL [Concomitant]
     Indication: HYPERTENSION

REACTIONS (19)
  - Muscular weakness [Recovering/Resolving]
  - Paralysis [Unknown]
  - Hypertension [Unknown]
  - Headache [Recovered/Resolved]
  - Vomiting [Recovered/Resolved]
  - Hyperglycaemia [Unknown]
  - Hypercholesterolaemia [Unknown]
  - Hypertriglyceridaemia [Unknown]
  - Somnolence [Unknown]
  - Disease progression [Unknown]
  - Tremor [Unknown]
  - Amnesia [Unknown]
  - Repetitive speech [Unknown]
  - Diarrhoea [Recovered/Resolved]
  - Nausea [Recovered/Resolved]
  - Alopecia [Recovered/Resolved]
  - Musculoskeletal pain [Recovered/Resolved]
  - Dizziness [Recovered/Resolved]
  - Epistaxis [Recovered/Resolved]
